FAERS Safety Report 4381946-X (Version None)
Quarter: 2004Q2

REPORT INFORMATION
  Report Type: 
  Country: None (occurrence: None)
  Receive Date: 20040615
  Receipt Date: 20040604
  Transmission Date: 20050107
  Serious: Yes (Other)
  Sender: FDA-Public Use
  Company Number: 2004-DE-03196GD

PATIENT
  Age: 10 Year
  Sex: Male

DRUGS (1)
  1. LOPERAMIDE HCL [Suspect]
     Indication: GASTROENTERITIS
     Dosage: 2 MG, PO
     Route: 048

REACTIONS (8)
  - ANAPHYLACTIC REACTION [None]
  - COUGH [None]
  - CYANOSIS [None]
  - DYSPNOEA [None]
  - NASAL CONGESTION [None]
  - RHINORRHOEA [None]
  - SKIN TEST POSITIVE [None]
  - WHEEZING [None]
